FAERS Safety Report 4607400-5 (Version None)
Quarter: 2005Q1

REPORT INFORMATION
  Report Type: 
  Country: None (occurrence: None)
  Receive Date: 20050309
  Receipt Date: 20050221
  Transmission Date: 20050727
  Serious: No
  Sender: FDA-Public Use
  Company Number: 10388

PATIENT
  Sex: Female

DRUGS (1)
  1. CARBOPLATIN [Suspect]
     Indication: CERVIX CANCER METASTATIC
     Dosage: 6 MG/ML OTH
     Route: 050

REACTIONS (2)
  - AFFECTIVE DISORDER [None]
  - SUICIDE ATTEMPT [None]
